FAERS Safety Report 12750112 (Version 1)
Quarter: 2016Q3

REPORT INFORMATION
  Report Type: Spontaneous
  Country: US (occurrence: US)
  Receive Date: 20160916
  Receipt Date: 20160916
  Transmission Date: 20161109
  Serious: No
  Sender: FDA-Public Use
  Company Number: US-BEH-2016073485

PATIENT
  Age: 44 Year
  Sex: Female
  Weight: 104.31 kg

DRUGS (1)
  1. HIZENTRA [Suspect]
     Active Substance: HUMAN IMMUNOGLOBULIN G
     Indication: IMMUNODEFICIENCY COMMON VARIABLE
     Dosage: 12 G, EVERY WEEK
     Route: 058
     Dates: start: 20160105

REACTIONS (1)
  - Infection [Unknown]

NARRATIVE: CASE EVENT DATE: 20160830
